FAERS Safety Report 24839926 (Version 3)
Quarter: 2025Q1

REPORT INFORMATION
  Report Type: Report from Study
  Country: GB (occurrence: GB)
  Receive Date: 20250114
  Receipt Date: 20250219
  Transmission Date: 20250409
  Serious: Yes (Other)
  Sender: NOVARTIS
  Company Number: GB-002147023-NVSC2025GB004436

PATIENT
  Sex: Female

DRUGS (2)
  1. COSENTYX [Suspect]
     Active Substance: SECUKINUMAB
     Indication: Psoriatic arthropathy
     Dosage: 150 MG, QMO
     Route: 065
     Dates: end: 20240531
  2. COSENTYX [Suspect]
     Active Substance: SECUKINUMAB
     Dosage: 300 MG, QMO
     Route: 058
     Dates: start: 20240601, end: 20250101

REACTIONS (5)
  - Lower respiratory tract infection [Unknown]
  - Influenza [Unknown]
  - Tachycardia [Not Recovered/Not Resolved]
  - Dyspnoea exertional [Unknown]
  - Tremor [Unknown]
